FAERS Safety Report 4978142-1 (Version None)
Quarter: 2006Q2

REPORT INFORMATION
  Report Type: 
  Country: None (occurrence: None)
  Receive Date: 20060417
  Receipt Date: 20060331
  Transmission Date: 20061013
  Serious: Yes (Other)
  Sender: FDA-Public Use
  Company Number: TRP_0732_2006

PATIENT
  Age: 59 Year
  Sex: Female

DRUGS (8)
  1. RIBASPHERE [Suspect]
     Indication: HEPATITIS C
     Dosage: 800 MG QDAY PO
     Route: 048
     Dates: start: 20050328, end: 20060220
  2. PEG-INTRON [Suspect]
     Indication: HEPATITIS C
     Dosage: 150 MCG QWK SC
     Route: 058
     Dates: start: 20050328, end: 20060220
  3. ALLEGRA [Concomitant]
  4. FLONASE [Concomitant]
  5. FOSAMAX [Concomitant]
  6. MEGESTROL ACETATE [Concomitant]
  7. SYNTHROID [Concomitant]
  8. ZOLOFT [Concomitant]

REACTIONS (3)
  - DYSPNOEA [None]
  - LUNG NEOPLASM [None]
  - REFUSAL OF TREATMENT BY PATIENT [None]
